FAERS Safety Report 18630247 (Version 1)
Quarter: 2020Q4

REPORT INFORMATION
  Report Type: Spontaneous
  Country: IT (occurrence: IT)
  Receive Date: 20201217
  Receipt Date: 20201217
  Transmission Date: 20210114
  Serious: Yes (Other)
  Sender: FDA-Public Use
  Company Number: IT-ELI_LILLY_AND_COMPANY-IT202012003990

PATIENT
  Age: 36 Year
  Sex: Female
  Weight: 61 kg

DRUGS (2)
  1. PACLITAXEL. [Suspect]
     Active Substance: PACLITAXEL
     Indication: GASTRIC CANCER
     Dosage: 105 MG, CYCLICAL
     Route: 065
     Dates: start: 20200911, end: 20201124
  2. CYRAMZA [Suspect]
     Active Substance: RAMUCIRUMAB
     Indication: GASTRIC CANCER
     Dosage: 480 MG, CYCLICAL
     Route: 065
     Dates: start: 20200911, end: 20201124

REACTIONS (3)
  - Asthenia [Unknown]
  - Neutropenia [Unknown]
  - Nausea [Unknown]

NARRATIVE: CASE EVENT DATE: 20201124
